FAERS Safety Report 6946226-4 (Version None)
Quarter: 2010Q3

REPORT INFORMATION
  Report Type: 
  Country: None (occurrence: None)
  Receive Date: 20100824
  Receipt Date: 20100816
  Transmission Date: 20110219
  Serious: Yes (Other)
  Sender: FDA-Public Use
  Company Number: AUR-APL-2010-02051

PATIENT
  Age: 17 Year
  Sex: Female
  Weight: 59 kg

DRUGS (8)
  1. AMOXICILLIN [Suspect]
     Indication: URINARY TRACT INFECTION
     Dosage: 500MG- TID- ORAL
     Route: 048
     Dates: start: 20091222
  2. CERVARIX (GLAXOSMITHKLINE) [Suspect]
     Indication: PROPHYLAXIS
     Dosage: 1DF- ONCE- IM
     Route: 030
     Dates: start: 20091101
  3. CLOTRIMAZOLE [Suspect]
     Indication: CANDIDIASIS
     Dates: start: 20091215
  4. DIAZEPAM [Suspect]
     Indication: SEDATION
     Dosage: 2MG- TID- ORAL
     Route: 048
     Dates: start: 20091013, end: 20091016
  5. CLENIL MODULITE [Concomitant]
  6. FOLIC ACID [Concomitant]
  7. NORDETTE-28 [Concomitant]
  8. ALBUTEROL SULFATE AUTOHALER [Concomitant]

REACTIONS (4)
  - ABORTION SPONTANEOUS [None]
  - CANDIDIASIS [None]
  - DRUG EXPOSURE DURING PREGNANCY [None]
  - URINARY TRACT INFECTION [None]
